FAERS Safety Report 22393248 (Version 1)
Quarter: 2023Q2

REPORT INFORMATION
  Report Type: Spontaneous
  Country: US (occurrence: US)
  Receive Date: 20230601
  Receipt Date: 20230601
  Transmission Date: 20230721
  Serious: Yes (Hospitalization, Other)
  Sender: FDA-Public Use
  Company Number: US-INSUD PHARMA-2305US03437

PATIENT

DRUGS (3)
  1. ESTRADIOL [Suspect]
     Active Substance: ESTRADIOL
     Indication: Transgender hormonal therapy
     Dosage: UNK
     Route: 065
  2. CYPROTERONE ACETATE [Suspect]
     Active Substance: CYPROTERONE ACETATE
     Indication: Transgender hormonal therapy
     Dosage: INTERMITTENTLY
     Route: 065
  3. N-METHYLCYCLAZODONE [Suspect]
     Active Substance: N-METHYLCYCLAZODONE
     Indication: Attention deficit hyperactivity disorder
     Dosage: UNK
     Route: 065

REACTIONS (15)
  - Drug-induced liver injury [Recovered/Resolved with Sequelae]
  - Acute hepatic failure [Recovered/Resolved with Sequelae]
  - Hepatic function abnormal [Unknown]
  - Abdominal discomfort [Unknown]
  - Jaundice [Unknown]
  - Faeces pale [Unknown]
  - Memory impairment [Unknown]
  - Haematemesis [Unknown]
  - Spontaneous bacterial peritonitis [Unknown]
  - Intestinal pseudo-obstruction [Unknown]
  - Renal tubular necrosis [Unknown]
  - Acquired phimosis [Unknown]
  - Complications of transplanted liver [Recovered/Resolved]
  - Venous haemorrhage [Recovered/Resolved]
  - Prescription drug used without a prescription [Unknown]
